FAERS Safety Report 5235312-5 (Version None)
Quarter: 2007Q1

REPORT INFORMATION
  Report Type: 
  Country: None (occurrence: None)
  Receive Date: 20061208
  Receipt Date: 20060710
  Transmission Date: 20070707
  Serious: Yes (Other)
  Sender: FDA-Public Use
  Company Number: 2006UW14132

PATIENT
  Age: 78 Year
  Sex: Female
  Weight: 72.574 kg

DRUGS (2)
  1. CRESTOR [Suspect]
     Indication: BLOOD CHOLESTEROL INCREASED
     Dosage: 5 MG ONCE PO
     Route: 048
  2. SYNTHROID [Concomitant]

REACTIONS (2)
  - FEELING HOT AND COLD [None]
  - FLUSHING [None]
